FAERS Safety Report 8437149-2 (Version None)
Quarter: 2012Q2

REPORT INFORMATION
  Report Type: 
  Country: None (occurrence: None)
  Receive Date: 20120614
  Receipt Date: 20120416
  Transmission Date: 20120825
  Serious: No
  Sender: FDA-Public Use
  Company Number: US-AMGEN-USASP2012020120

PATIENT
  Age: 78 Year
  Sex: Female
  Weight: 47.075 kg

DRUGS (10)
  1. ASPIRIN [Concomitant]
     Dosage: 325 MG, QD
  2. HYDROCORTISONE [Concomitant]
     Dosage: 10 MG, BID
  3. PROLIA [Suspect]
     Indication: OSTEOPOROSIS POSTMENOPAUSAL
     Dosage: 60 MG, Q6MO
     Dates: start: 20110329, end: 20111017
  4. MELATONIN [Concomitant]
     Dosage: 3 MG, QD
  5. CALCIUM WITH VITAMIN D [Concomitant]
     Dosage: 600 MG, QD
  6. LEVOTHYROXINE SODIUM [Concomitant]
     Dosage: 75 MUG, QD
  7. MULTIVITAMINS WITH IRON [Concomitant]
     Dosage: UNK
  8. IRON [Concomitant]
     Dosage: 65 MG, QD
  9. LIOTHYRONINE SODIUM [Concomitant]
     Dosage: 50 MUG, QD
  10. EXTRA STRENGTH TYLENOL [Concomitant]
     Dosage: 500 MG, PRN

REACTIONS (2)
  - MYALGIA [None]
  - BACK PAIN [None]
